FAERS Safety Report 6329963-4 (Version None)
Quarter: 2009Q3

REPORT INFORMATION
  Report Type: 
  Country: None (occurrence: None)
  Receive Date: 20090825
  Receipt Date: 20090813
  Transmission Date: 20100115
  Serious: Yes (Death, Disabling)
  Sender: FDA-Public Use
  Company Number: 2009-02888

PATIENT
  Age: 59 Year
  Sex: Male
  Weight: 51 kg

DRUGS (10)
  1. VELCADE [Suspect]
     Indication: MULTIPLE MYELOMA
     Dosage: INTRAVENOUS
     Route: 042
     Dates: start: 20080609, end: 20080619
  2. VALTREX [Concomitant]
  3. ACETAMINOPHEN [Concomitant]
  4. PRIMPERAN TAB [Concomitant]
  5. CELECOXIB [Concomitant]
  6. LANSOPRAZOLE [Concomitant]
  7. ALLOPURINOL [Concomitant]
  8. MEDICON (DEXTROMETHORPHAN HYDROBROMIDE) [Concomitant]
  9. METHYCOBAL (MECOBALAMIN) [Concomitant]
  10. MUCOSTA (REBAMIPIDE) [Concomitant]

REACTIONS (3)
  - HERPES ZOSTER [None]
  - MULTI-ORGAN FAILURE [None]
  - POST HERPETIC NEURALGIA [None]
